FAERS Safety Report 9121065 (Version 1)
Quarter: 2013Q1

REPORT INFORMATION
  Report Type: Spontaneous
  Country: US (occurrence: US)
  Receive Date: 20130226
  Receipt Date: 20130226
  Transmission Date: 20140127
  Serious: Yes (Other)
  Sender: FDA-Public Use
  Company Number: US-PFIZER INC-2013068209

PATIENT
  Age: 50 Year
  Sex: Female
  Weight: 52.83 kg

DRUGS (4)
  1. LYRICA [Suspect]
     Indication: NEURALGIA
     Dosage: 150 MG, 2X/DAY
     Route: 048
  2. LYRICA [Suspect]
     Dosage: 200 MG, 2X/DAY
     Route: 048
  3. CYMBALTA [Concomitant]
     Dosage: UNK
  4. ACETAMINOPHEN W/OXYCODONE [Concomitant]
     Dosage: 10/325 MG, UNK

REACTIONS (6)
  - Visual acuity reduced [Unknown]
  - Activities of daily living impaired [Unknown]
  - Astigmatism [Unknown]
  - Pain [Unknown]
  - Weight increased [Unknown]
  - Inappropriate schedule of drug administration [Unknown]
